FAERS Safety Report 4552113-1 (Version None)
Quarter: 2005Q1

REPORT INFORMATION
  Report Type: 
  Country: None (occurrence: None)
  Receive Date: 20050112
  Receipt Date: 20041227
  Transmission Date: 20050727
  Serious: Yes (Death)
  Sender: FDA-Public Use
  Company Number: 206414

PATIENT
  Sex: Female

DRUGS (17)
  1. AVONEX [Suspect]
     Indication: MULTIPLE SCLEROSIS
     Dosage: 30 UG; QW; IM
     Route: 030
     Dates: start: 20040522, end: 20041001
  2. ALLEGRA [Concomitant]
  3. AMANTIDINE [Concomitant]
  4. ATIVAN [Concomitant]
  5. COREG [Concomitant]
  6. DETROL [Concomitant]
  7. ENTEX CAP [Concomitant]
  8. FIORINAL [Concomitant]
  9. INDAPAMIDE [Concomitant]
  10. NEXIUM [Concomitant]
  11. PHENERGAN [Concomitant]
  12. PREDNISONE [Concomitant]
  13. PREMARIN [Concomitant]
  14. PROVIGIL [Concomitant]
  15. SKELAXIN [Concomitant]
  16. VERAPAMIL [Concomitant]
  17. CELEBREX [Concomitant]

REACTIONS (5)
  - ACUTE MYOCARDIAL INFARCTION [None]
  - CARDIAC FAILURE [None]
  - CORONARY ARTERY OCCLUSION [None]
  - SHOCK [None]
  - VENTRICULAR SEPTAL DEFECT ACQUIRED [None]
